FAERS Safety Report 16253594 (Version 3)
Quarter: 2019Q2

REPORT INFORMATION
  Report Type: Spontaneous
  Country: DE (occurrence: DE)
  Receive Date: 20190430
  Receipt Date: 20190624
  Transmission Date: 20190711
  Serious: Yes (Life-Threatening, Other)
  Sender: FDA-Public Use
  Company Number: DE-AUROBINDO-AUR-APL-2019-023221

PATIENT

DRUGS (4)
  1. KISQALI [Suspect]
     Active Substance: RIBOCICLIB
     Dosage: 600 MILLIGRAM, ONCE A DAY,(21 DAYS INTAKE, 7 DAYS PAUSE)
     Route: 048
     Dates: start: 20190201
  2. LETROZOLE. [Suspect]
     Active Substance: LETROZOLE
     Indication: BREAST CANCER
     Dosage: 2.5 MILLIGRAM, ONCE A DAY
     Route: 048
     Dates: start: 20190125
  3. KISQALI [Suspect]
     Active Substance: RIBOCICLIB
     Indication: BREAST CANCER
     Dosage: 400 MILLIGRAM, ONCE A DAY,(21 DAYS INTAKE, 7 DAYS PAUSE)
     Route: 048
     Dates: start: 20190125
  4. KISQALI [Suspect]
     Active Substance: RIBOCICLIB
     Dosage: 400 MILLIGRAM, ONCE A DAY,(21 DAYS INTAKE, 7 DAYS PAUSE)
     Route: 048
     Dates: start: 20190227

REACTIONS (3)
  - Pruritus [Recovered/Resolved]
  - Infection [Recovered/Resolved]
  - Thrombocytopenia [Recovered/Resolved]

NARRATIVE: CASE EVENT DATE: 20190205
